FAERS Safety Report 5444445-X (Version None)
Quarter: 2007Q3

REPORT INFORMATION
  Report Type: 
  Country: None (occurrence: None)
  Receive Date: 20070824
  Receipt Date: 20070816
  Transmission Date: 20080115
  Serious: Yes (Other)
  Sender: FDA-Public Use
  Company Number: CHPA2007US08754

PATIENT
  Age: 76 Year
  Sex: 0

DRUGS (1)
  1. FERROUS SULFATE TAB [Suspect]
     Indication: BLOOD IRON DECREASED
     Dosage: 160 MG, QD, ORAL
     Route: 048
     Dates: start: 20070801

REACTIONS (2)
  - CONCOMITANT DISEASE AGGRAVATED [None]
  - PARKINSON'S DISEASE [None]
